FAERS Safety Report 19902693 (Version 1)
Quarter: 2021Q3

REPORT INFORMATION
  Report Type: Spontaneous
  Country: CA (occurrence: CA)
  Receive Date: 20210930
  Receipt Date: 20210930
  Transmission Date: 20211014
  Serious: Yes (Other)
  Sender: FDA-Public Use
  Company Number: CA-TEVA-2021-CA-1958250

PATIENT
  Age: 59 Year
  Sex: Male

DRUGS (1)
  1. TEVA?CEFALEXIN [Suspect]
     Active Substance: CEPHALEXIN
     Route: 065

REACTIONS (4)
  - Tongue discomfort [Unknown]
  - Tongue disorder [Unknown]
  - Hypersensitivity [Unknown]
  - Paraesthesia oral [Unknown]
